FAERS Safety Report 14614055 (Version 1)
Quarter: 2018Q1

REPORT INFORMATION
  Report Type: Report from Study
  Country: FR (occurrence: FR)
  Receive Date: 20180308
  Receipt Date: 20180308
  Transmission Date: 20180509
  Serious: Yes (Other)
  Sender: FDA-Public Use
  Company Number: FR-GILEAD-2018-0324376

PATIENT
  Age: 69 Year
  Sex: Female
  Weight: 85 kg

DRUGS (13)
  1. LEVOTHYROX [Concomitant]
     Active Substance: LEVOTHYROXINE
     Indication: HYPOTHYROIDISM
     Dosage: 75 UG, QD
     Dates: start: 200712, end: 20160709
  2. PROPANOLOL                         /00030001/ [Concomitant]
     Active Substance: PROPRANOLOL HYDROCHLORIDE
     Indication: HYPERTENSION
     Dosage: 20 MG, TID
     Dates: start: 201212, end: 20160709
  3. DUPHALAC [Concomitant]
     Active Substance: LACTULOSE
     Dosage: UNK
     Dates: end: 20160709
  4. DACLATASVIR. [Suspect]
     Active Substance: DACLATASVIR
     Indication: HEPATITIS
     Dosage: 60 MG, QD
     Route: 065
     Dates: start: 20140626, end: 20141209
  5. MOCLAMINE [Concomitant]
     Active Substance: MOCLOBEMIDE
     Indication: MAJOR DEPRESSION
     Dosage: 300 MG, BID
     Dates: start: 200712, end: 20160709
  6. NOCTAMIDE [Concomitant]
     Active Substance: LORMETAZEPAM
     Dosage: UNK
     Dates: end: 20160709
  7. LEXOMIL [Concomitant]
     Active Substance: BROMAZEPAM
     Dosage: UNK
     Dates: start: 20150705, end: 20160709
  8. BROMAZEPAM [Concomitant]
     Active Substance: BROMAZEPAM
     Indication: ANXIETY
     Dosage: UNK
     Dates: start: 20141222, end: 20160709
  9. MIANSERINE                         /00390601/ [Concomitant]
     Active Substance: MIANSERIN
     Indication: MAJOR DEPRESSION
     Dosage: 60 MG, QD
     Dates: start: 200712, end: 20160709
  10. SOFOSBUVIR [Suspect]
     Active Substance: SOFOSBUVIR
     Indication: HEPATITIS
     Dosage: 400 MG, QD
     Route: 065
     Dates: start: 20140626, end: 20141209
  11. NOVOMIX [Concomitant]
     Active Substance: INSULIN ASPART
     Indication: DIABETES MELLITUS
     Dosage: 20 IU, BID
     Dates: start: 2008, end: 20160709
  12. TRISTART DHA [Concomitant]
     Active Substance: .ALPHA.-TOCOPHEROL ACETATE, D-\ASCORBIC ACID\CHOLECALCIFEROL\CYANOCOBALAMIN\DOCONEXENT\FOLIC ACID\ICOSAPENT\IRON PENTACARBONYL\LEVOMEFOLATE MAGNESIUM\MAGNESIUM OXIDE\NIACIN\POTASSIUM IODIDE\PYRIDOXINE HYDROCHLORIDE\RIBOFLAVIN\THIAMINE HYDROCHLORIDE
     Indication: HEPATIC ENCEPHALOPATHY
     Dosage: UNK
     Dates: start: 20150622, end: 20160709
  13. EUPANTOL [Concomitant]
     Active Substance: PANTOPRAZOLE SODIUM
     Dosage: 20 MG, QD
     Dates: start: 20150715, end: 20160709

REACTIONS (1)
  - Hepatocellular carcinoma [Unknown]

NARRATIVE: CASE EVENT DATE: 20150730
